FAERS Safety Report 9055717 (Version 2)
Quarter: 2013Q1

REPORT INFORMATION
  Report Type: Spontaneous
  Country: TH (occurrence: TH)
  Receive Date: 20130206
  Receipt Date: 20130220
  Transmission Date: 20140127
  Serious: Yes (Life-Threatening)
  Sender: FDA-Public Use
  Company Number: TH-JNJFOC-20130115285

PATIENT
  Age: 3 Decade
  Sex: 0

DRUGS (1)
  1. INVEGA [Suspect]
     Indication: SCHIZOPHRENIA
     Route: 048
     Dates: start: 20130120, end: 20130120

REACTIONS (1)
  - Tongue spasm [Recovered/Resolved]
